FAERS Safety Report 4832299-1 (Version None)
Quarter: 2005Q4

REPORT INFORMATION
  Report Type: 
  Country: None (occurrence: None)
  Receive Date: 20051116
  Receipt Date: 20051116
  Transmission Date: 20060501
  Serious: No
  Sender: FDA-Public Use
  Company Number: None

PATIENT
  Age: 20 Year
  Sex: Female
  Weight: 63.5036 kg

DRUGS (2)
  1. LEVAQUIN [Suspect]
     Indication: ANIMAL BITE
     Dosage: 500 QD PO
     Route: 048
     Dates: start: 20051105
  2. LEVAQUIN [Suspect]
     Indication: INFECTION
     Dosage: 500 QD PO
     Route: 048
     Dates: start: 20051105

REACTIONS (1)
  - GOUT [None]
